FAERS Safety Report 16720602 (Version 2)
Quarter: 2019Q3

REPORT INFORMATION
  Report Type: Spontaneous
  Country: IL (occurrence: IL)
  Receive Date: 20190820
  Receipt Date: 20190903
  Transmission Date: 20191005
  Serious: Yes (Death, Hospitalization)
  Sender: FDA-Public Use
  Company Number: IL-SA-2019SA226071

PATIENT
  Age: 69 Year
  Sex: Female

DRUGS (1)
  1. LANTUS [Suspect]
     Active Substance: INSULIN GLARGINE
     Dosage: UNK, UNK
     Route: 065

REACTIONS (4)
  - Decubitus ulcer [Unknown]
  - Oesophageal achalasia [Recovering/Resolving]
  - Angiopathy [Recovering/Resolving]
  - Death [Fatal]
